FAERS Safety Report 9695631 (Version 2)
Quarter: 2014Q1

REPORT INFORMATION
  Report Type: Report from Study
  Country: NL (occurrence: NL)
  Receive Date: 20131119
  Receipt Date: 20140107
  Transmission Date: 20141002
  Serious: Yes (Other)
  Sender: FDA-Public Use
  Company Number: PHHO2013NL014922

PATIENT
  Sex: 0

DRUGS (11)
  1. METFORMIN HYDROCHLORIDE SANDOZ [Suspect]
     Dosage: 1000 MG, BID
     Route: 048
     Dates: start: 20131107, end: 20131110
  2. BLINDED LCQ908 [Suspect]
     Indication: HYPERCHYLOMICRONAEMIA
     Dosage: CODE NOT BROKEN
     Route: 048
     Dates: start: 20130531
  3. BLINDED NO TREATMENT RECEIVED [Suspect]
     Indication: HYPERCHYLOMICRONAEMIA
     Dosage: CODE NOT BROKEN
     Route: 048
     Dates: start: 20130531
  4. BLINDED PLACEBO [Suspect]
     Indication: HYPERCHYLOMICRONAEMIA
     Dosage: CODE NOT BROKEN
     Route: 048
     Dates: start: 20130531
  5. JANUMET [Concomitant]
  6. EZETROL [Concomitant]
     Dosage: UNK
  7. CRESTOR [Concomitant]
     Dosage: UNK
  8. DESLORATADINE [Concomitant]
     Dosage: UNK
  9. LIVOSTIN NASAL SPRAY [Concomitant]
     Dosage: UNK
  10. LANTUS [Concomitant]
     Dosage: UNK
  11. NOVORAPID [Concomitant]
     Dosage: UNK

REACTIONS (1)
  - Hepatic enzyme increased [Recovering/Resolving]
